FAERS Safety Report 6840573-2 (Version None)
Quarter: 2010Q3

REPORT INFORMATION
  Report Type: 
  Country: None (occurrence: None)
  Receive Date: 20100714
  Receipt Date: 20100707
  Transmission Date: 20110219
  Serious: Yes (Hospitalization)
  Sender: FDA-Public Use
  Company Number: B0555835B

PATIENT
  Sex: Female
  Weight: 84 kg

DRUGS (6)
  1. LAPATINIB [Suspect]
     Indication: BREAST CANCER
     Dosage: 1500MG PER DAY
     Route: 048
     Dates: start: 20081220
  2. TAMOXIFEN [Suspect]
     Dates: start: 20090220, end: 20090316
  3. DOCETAXEL [Suspect]
     Indication: BREAST CANCER
     Dosage: 550MG PER DAY
     Route: 042
     Dates: start: 20081020, end: 20081203
  4. EPIRUBICIN [Concomitant]
     Dates: start: 20080818, end: 20080929
  5. CYCLOPHOSPHAMIDE [Concomitant]
     Dates: start: 20080818, end: 20080929
  6. RADIOTHERAPY [Concomitant]

REACTIONS (1)
  - POLYNEUROPATHY [None]
